FAERS Safety Report 4589155-6 (Version None)
Quarter: 2005Q1

REPORT INFORMATION
  Report Type: 
  Country: None (occurrence: None)
  Receive Date: 20050215
  Receipt Date: 20050215
  Transmission Date: 20050727
  Serious: Yes (Other)
  Sender: FDA-Public Use
  Company Number: None

PATIENT
  Sex: Female

DRUGS (7)
  1. SOOTHE EMOLLIENT ALIMERA SCIENCES [Suspect]
     Indication: DRY EYE
     Dosage: ONE DOSE TOPICAL
     Route: 061
     Dates: start: 20050130, end: 20050130
  2. NEURONTIN [Concomitant]
  3. MAXALT [Concomitant]
  4. TOPAMAX [Concomitant]
  5. MOBIC [Concomitant]
  6. OXYCONTIN [Concomitant]
  7. AMITRIPTYLINE HCL [Concomitant]

REACTIONS (8)
  - EYE INFLAMMATION [None]
  - EYE PAIN [None]
  - INSTILLATION SITE ERYTHEMA [None]
  - INSTILLATION SITE PAIN [None]
  - LACRIMATION INCREASED [None]
  - OCULAR HYPERAEMIA [None]
  - PHOTOSENSITIVITY REACTION [None]
  - VISION BLURRED [None]
